FAERS Safety Report 23051448 (Version 11)
Quarter: 2024Q4

REPORT INFORMATION
  Report Type: Report from Study
  Country: AR (occurrence: AR)
  Receive Date: 20231010
  Receipt Date: 20241122
  Transmission Date: 20250114
  Serious: Yes (Other)
  Sender: NOVARTIS
  Company Number: AR-002147023-NVSC2023AR214889

PATIENT
  Age: 1 Year
  Sex: Female

DRUGS (1)
  1. ZOLGENSMA [Suspect]
     Active Substance: ONASEMNOGENE ABEPARVOVEC-XIOI
     Indication: Spinal muscular atrophy
     Dosage: 47 ML, ONCE/SINGLE
     Route: 042
     Dates: start: 20230901, end: 20230901

REACTIONS (32)
  - Neutropenia [Unknown]
  - Leukopenia [Unknown]
  - Neutropenia [Recovered/Resolved]
  - Haematocrit decreased [Unknown]
  - Mean cell haemoglobin [Unknown]
  - Red blood cell abnormality [Unknown]
  - Neutrophil count decreased [Unknown]
  - Monocyte count increased [Unknown]
  - Blood cholesterol increased [Unknown]
  - Blood alkaline phosphatase increased [Unknown]
  - Anisocytosis [Unknown]
  - Neutrophil count increased [Unknown]
  - White blood cell count increased [Unknown]
  - Red cell distribution width decreased [Unknown]
  - Reticulocyte count decreased [Unknown]
  - Hyperchloraemia [Unknown]
  - Hypercreatininaemia [Unknown]
  - Base excess abnormal [Unknown]
  - Blood bicarbonate decreased [Unknown]
  - Lymphocyte count increased [Unknown]
  - Hyperglycaemia [Unknown]
  - Haemoglobin decreased [Unknown]
  - Troponin T increased [Unknown]
  - Aspartate aminotransferase increased [Unknown]
  - Transaminases decreased [Unknown]
  - Transaminases increased [Unknown]
  - Alanine aminotransferase abnormal [Unknown]
  - White blood cell count decreased [Unknown]
  - Hepatic enzyme increased [Unknown]
  - Vomiting [Unknown]
  - Pyrexia [Unknown]
  - Catarrh [Unknown]

NARRATIVE: CASE EVENT DATE: 20230903
